FAERS Safety Report 4479986-5 (Version None)
Quarter: 2004Q3

REPORT INFORMATION
  Report Type: 
  Country: None (occurrence: None)
  Receive Date: 20040930
  Receipt Date: 20040820
  Transmission Date: 20050211
  Serious: Yes (Disabling)
  Sender: FDA-Public Use
  Company Number: 200410131BBE

PATIENT
  Age: 57 Year
  Sex: Male

DRUGS (7)
  1. GAMUNEX [Suspect]
     Indication: CHRONIC FATIGUE SYNDROME
     Dosage: 39 G, Q3WK, INTRAVENOUS
     Route: 042
     Dates: start: 20040301, end: 20040501
  2. GAMUNEX [Suspect]
     Indication: SELECTIVE IGG SUBCLASS DEFICIENCY
     Dosage: 39 G, Q3WK, INTRAVENOUS
     Route: 042
     Dates: start: 20040301, end: 20040501
  3. VIOXX [Concomitant]
  4. AMBIEN [Concomitant]
  5. SYNTHROID [Concomitant]
  6. PREVACID [Concomitant]
  7. LIPITOR [Concomitant]

REACTIONS (3)
  - DRUG INEFFECTIVE [None]
  - FEELING ABNORMAL [None]
  - INFECTION [None]
